FAERS Safety Report 5159080-0 (Version None)
Quarter: 2006Q4

REPORT INFORMATION
  Report Type: 
  Country: None (occurrence: None)
  Receive Date: 20061128
  Receipt Date: 20061026
  Transmission Date: 20070319
  Serious: Yes (Death, Life-Threatening, Hospitalization)
  Sender: FDA-Public Use
  Company Number: FR-BOEHRINGER INGELHEIM PHARMACEUTICALS, INC.-2006-FF-01186FF

PATIENT
  Sex: Male
  Weight: 60 kg

DRUGS (4)
  1. VIRAMUNE [Suspect]
     Indication: HIV INFECTION
     Route: 048
     Dates: start: 20060915, end: 20060929
  2. VIRAMUNE [Suspect]
     Route: 048
     Dates: start: 20060930, end: 20061022
  3. FUCIDINE CAP [Concomitant]
     Indication: FURUNCLE
     Dates: start: 20061011, end: 20061022
  4. TRUVADA [Concomitant]
     Indication: HIV INFECTION
     Dates: start: 20060915, end: 20061022

REACTIONS (7)
  - BLEPHARITIS [None]
  - CARDIO-RESPIRATORY ARREST [None]
  - CONJUNCTIVITIS [None]
  - FOOD POISONING [None]
  - RASH [None]
  - TOXIC EPIDERMAL NECROLYSIS [None]
  - URTICARIA [None]
